FAERS Safety Report 4636156-5 (Version None)
Quarter: 2005Q2

REPORT INFORMATION
  Report Type: 
  Country: None (occurrence: None)
  Receive Date: 20050415
  Receipt Date: 20050406
  Transmission Date: 20051028
  Serious: Yes (Hospitalization)
  Sender: FDA-Public Use
  Company Number: DE-BRISTOL-MYERS SQUIBB COMPANY-12924619

PATIENT
  Age: 68 Year
  Sex: Male

DRUGS (8)
  1. ETOPOSIDE [Suspect]
     Indication: SMALL CELL LUNG CANCER STAGE UNSPECIFIED
     Route: 042
     Dates: start: 20041209, end: 20041211
  2. ETOPOSIDE [Suspect]
     Route: 042
     Dates: start: 20041119, end: 20041121
  3. CISPLATIN [Suspect]
     Indication: SMALL CELL LUNG CANCER STAGE UNSPECIFIED
     Route: 042
     Dates: start: 20041209, end: 20041209
  4. CISPLATIN [Suspect]
     Route: 042
     Dates: start: 20041119, end: 20041119
  5. ALLOPURINOL [Concomitant]
  6. RANITIDINE HCL [Concomitant]
  7. METOCLOPRAMIDE [Concomitant]
  8. CLARITHROMYCIN [Concomitant]

REACTIONS (2)
  - FEBRILE NEUTROPENIA [None]
  - TYPHOID FEVER [None]
